FAERS Safety Report 6586564-0 (Version None)
Quarter: 2010Q1

REPORT INFORMATION
  Report Type: 
  Country: None (occurrence: None)
  Receive Date: 20100216
  Receipt Date: 20100216
  Transmission Date: 20100710
  Serious: Yes (Life-Threatening, Other)
  Sender: FDA-Public Use
  Company Number: None

PATIENT
  Age: 56 Year
  Sex: Male
  Weight: 87.0906 kg

DRUGS (2)
  1. VERAPAMIL [Suspect]
     Indication: HYPERTENSION
     Dates: start: 20091201, end: 20100101
  2. VERAPAMIL [Suspect]
     Indication: HYPERTENSION
     Dates: start: 20100103, end: 20100214

REACTIONS (10)
  - ABDOMINAL DISTENSION [None]
  - BLOOD PRESSURE INCREASED [None]
  - CHEST PAIN [None]
  - CONDITION AGGRAVATED [None]
  - DIZZINESS [None]
  - DRUG INTERACTION [None]
  - GASTRIC DISORDER [None]
  - MALAISE [None]
  - PRODUCT SUBSTITUTION ISSUE [None]
  - VOMITING [None]
